FAERS Safety Report 5820348-3 (Version None)
Quarter: 2008Q3

REPORT INFORMATION
  Report Type: 
  Country: None (occurrence: None)
  Receive Date: 20080724
  Receipt Date: 20070612
  Transmission Date: 20090109
  Serious: No
  Sender: FDA-Public Use
  Company Number: A0655286A

PATIENT
  Age: 60 Year
  Sex: Female

DRUGS (4)
  1. AVANDIA [Suspect]
     Dosage: 8MG PER DAY
     Route: 048
     Dates: start: 19980101, end: 20070529
  2. ENALAPRIL MALEATE [Concomitant]
  3. METFORMIN [Concomitant]
  4. CRESTOR [Concomitant]

REACTIONS (1)
  - PALPITATIONS [None]
